FAERS Safety Report 19368355 (Version 1)
Quarter: 2021Q2

REPORT INFORMATION
  Report Type: Spontaneous
  Country: US (occurrence: US)
  Receive Date: 20210602
  Receipt Date: 20210602
  Transmission Date: 20210717
  Serious: No
  Sender: FDA-Public Use
  Company Number: US-ROCHE-2582203

PATIENT
  Sex: Female

DRUGS (2)
  1. OCREVUS [Suspect]
     Active Substance: OCRELIZUMAB
     Route: 065
  2. OCREVUS [Suspect]
     Active Substance: OCRELIZUMAB
     Indication: MULTIPLE SCLEROSIS
     Dosage: ON 03/AUG/2018, SHE RECEIVED HER SECOND HALF DOSE OF 300 MG.
     Route: 065
     Dates: start: 20180720

REACTIONS (2)
  - No adverse event [Unknown]
  - Pregnancy [Unknown]
